FAERS Safety Report 6928823-5 (Version None)
Quarter: 2010Q3

REPORT INFORMATION
  Report Type: 
  Country: None (occurrence: None)
  Receive Date: 20100817
  Receipt Date: 20100803
  Transmission Date: 20110219
  Serious: Yes (Death)
  Sender: FDA-Public Use
  Company Number: IR-MYLANLABS-2010S1014003

PATIENT
  Age: 27 Year
  Sex: Male

DRUGS (1)
  1. TRAMADOL [Suspect]
     Indication: OVERDOSE
     Route: 065

REACTIONS (10)
  - BLOOD CREATINE PHOSPHOKINASE INCREASED [None]
  - BLOOD CREATININE INCREASED [None]
  - COMA [None]
  - CONVULSION [None]
  - HYPERTHERMIA [None]
  - MULTIPLE DRUG OVERDOSE [None]
  - MYOCLONUS [None]
  - OVERDOSE [None]
  - TACHYCARDIA [None]
  - WHITE BLOOD CELL COUNT INCREASED [None]
